FAERS Safety Report 5382424-1 (Version None)
Quarter: 2007Q2

REPORT INFORMATION
  Report Type: 
  Country: None (occurrence: None)
  Receive Date: 20070629
  Receipt Date: 20060511
  Transmission Date: 20071010
  Serious: Yes (Life-Threatening, Hospitalization)
  Sender: FDA-Public Use
  Company Number: VISP-PR-0605S-0283

PATIENT
  Age: 43 Year
  Sex: Female

DRUGS (4)
  1. VISIPAQUE [Suspect]
     Indication: DRUG USE FOR UNKNOWN INDICATION
     Dosage: 100 ML, SINGLE DOSE, I.V.
     Route: 042
     Dates: start: 20060425, end: 20060425
  2. SEVERAL UNSPECIFIED MEDICATIONS [Concomitant]
  3. MEDROL [Concomitant]
  4. SODIUM CHLORIDE 0.9% [Concomitant]

REACTIONS (1)
  - ANAPHYLACTOID SHOCK [None]
